FAERS Safety Report 9857154 (Version 1)
Quarter: 2014Q1

REPORT INFORMATION
  Report Type: Spontaneous
  Country: US (occurrence: US)
  Receive Date: 20140130
  Receipt Date: 20140130
  Transmission Date: 20141002
  Serious: Yes (Hospitalization, Other)
  Sender: FDA-Public Use
  Company Number: US-PFIZER INC-2014027944

PATIENT
  Age: 53 Year
  Sex: Female
  Weight: 90.7 kg

DRUGS (4)
  1. LYRICA [Suspect]
     Indication: FIBROMYALGIA
     Dosage: 300 MG, 3X/DAY
  2. LYRICA [Suspect]
     Dosage: 600 MG, 4X/DAY
  3. LYRICA [Suspect]
     Dosage: 300 MG, 3X/DAY
  4. MARIJUANA [Concomitant]
     Dosage: UNK

REACTIONS (6)
  - Drug dispensing error [Unknown]
  - Migraine [Unknown]
  - Weight increased [Unknown]
  - Spinal column stenosis [Unknown]
  - Pain [Unknown]
  - Back disorder [Unknown]
